FAERS Safety Report 18668075 (Version 8)
Quarter: 2025Q2

REPORT INFORMATION
  Report Type: Spontaneous
  Country: FR (occurrence: FR)
  Receive Date: 20201228
  Receipt Date: 20250630
  Transmission Date: 20250716
  Serious: Yes (Other)
  Sender: NOVARTIS
  Company Number: NVSC2020FR341916

PATIENT
  Age: 3 Year
  Sex: Female
  Weight: 16 kg

DRUGS (54)
  1. RITUXIMAB [Suspect]
     Active Substance: RITUXIMAB
     Indication: Prophylaxis against graft versus host disease
     Route: 065
  2. RITUXIMAB [Suspect]
     Active Substance: RITUXIMAB
     Indication: Bone marrow conditioning regimen
     Route: 065
  3. RITUXIMAB [Suspect]
     Active Substance: RITUXIMAB
     Indication: Prophylaxis against transplant rejection
     Route: 065
  4. RITUXIMAB [Suspect]
     Active Substance: RITUXIMAB
     Indication: Still^s disease
  5. RITUXIMAB [Suspect]
     Active Substance: RITUXIMAB
     Indication: Allogenic stem cell transplantation
  6. RITUXIMAB [Suspect]
     Active Substance: RITUXIMAB
     Indication: Allogenic stem cell transplantation
  7. RITUXIMAB [Suspect]
     Active Substance: RITUXIMAB
     Indication: Bone marrow conditioning regimen
  8. CYCLOSPORINE [Suspect]
     Active Substance: CYCLOSPORINE
     Indication: Prophylaxis against graft versus host disease
     Route: 065
  9. CYCLOSPORINE [Suspect]
     Active Substance: CYCLOSPORINE
     Indication: Prophylaxis against transplant rejection
  10. MYCOPHENOLATE MOFETIL [Suspect]
     Active Substance: MYCOPHENOLATE MOFETIL
     Indication: Prophylaxis against graft versus host disease
     Route: 065
  11. MYCOPHENOLATE MOFETIL [Suspect]
     Active Substance: MYCOPHENOLATE MOFETIL
     Indication: Prophylaxis against transplant rejection
     Route: 065
  12. MYCOPHENOLATE MOFETIL [Suspect]
     Active Substance: MYCOPHENOLATE MOFETIL
     Indication: Prophylaxis against graft versus host disease
  13. CYCLOPHOSPHAMIDE [Suspect]
     Active Substance: CYCLOPHOSPHAMIDE
     Indication: Prophylaxis against graft versus host disease
     Route: 065
  14. CYCLOPHOSPHAMIDE [Suspect]
     Active Substance: CYCLOPHOSPHAMIDE
     Indication: Prophylaxis against transplant rejection
     Route: 065
  15. CYCLOPHOSPHAMIDE [Suspect]
     Active Substance: CYCLOPHOSPHAMIDE
     Indication: Prophylaxis against graft versus host disease
     Route: 065
  16. FLUDARABINE [Suspect]
     Active Substance: FLUDARABINE PHOSPHATE
     Indication: Prophylaxis against graft versus host disease
     Route: 065
  17. FLUDARABINE [Suspect]
     Active Substance: FLUDARABINE PHOSPHATE
     Indication: Bone marrow conditioning regimen
  18. FLUDARABINE [Suspect]
     Active Substance: FLUDARABINE PHOSPHATE
     Indication: Prophylaxis against transplant rejection
  19. FLUDARABINE [Suspect]
     Active Substance: FLUDARABINE PHOSPHATE
     Indication: Still^s disease
  20. FLUDARABINE [Suspect]
     Active Substance: FLUDARABINE PHOSPHATE
     Indication: Allogenic stem cell transplantation
  21. BUSULFAN [Suspect]
     Active Substance: BUSULFAN
     Indication: Prophylaxis against graft versus host disease
     Route: 065
  22. BUSULFAN [Suspect]
     Active Substance: BUSULFAN
     Indication: Bone marrow conditioning regimen
  23. BUSULFAN [Suspect]
     Active Substance: BUSULFAN
     Indication: Prophylaxis against transplant rejection
  24. BUSULFAN [Suspect]
     Active Substance: BUSULFAN
     Indication: Still^s disease
  25. BUSULFAN [Suspect]
     Active Substance: BUSULFAN
     Indication: Allogenic stem cell transplantation
  26. ALEMTUZUMAB [Suspect]
     Active Substance: ALEMTUZUMAB
     Indication: Prophylaxis against graft versus host disease
     Route: 065
  27. ALEMTUZUMAB [Suspect]
     Active Substance: ALEMTUZUMAB
     Indication: Bone marrow conditioning regimen
     Route: 065
  28. ALEMTUZUMAB [Suspect]
     Active Substance: ALEMTUZUMAB
     Indication: Prophylaxis against transplant rejection
     Route: 065
  29. ALEMTUZUMAB [Suspect]
     Active Substance: ALEMTUZUMAB
     Indication: Still^s disease
     Route: 065
  30. ALEMTUZUMAB [Suspect]
     Active Substance: ALEMTUZUMAB
     Indication: Allogenic stem cell transplantation
     Route: 065
  31. ALEMTUZUMAB [Suspect]
     Active Substance: ALEMTUZUMAB
     Indication: Still^s disease
  32. ALEMTUZUMAB [Suspect]
     Active Substance: ALEMTUZUMAB
     Indication: Allogenic stem cell transplantation
  33. ALEMTUZUMAB [Suspect]
     Active Substance: ALEMTUZUMAB
     Indication: Bone marrow conditioning regimen
  34. METHOTREXATE [Suspect]
     Active Substance: METHOTREXATE
     Indication: Prophylaxis against transplant rejection
     Dosage: 5 MG, QW
     Route: 065
  35. METHOTREXATE [Suspect]
     Active Substance: METHOTREXATE
     Indication: Still^s disease
     Route: 065
  36. INFLIXIMAB [Suspect]
     Active Substance: INFLIXIMAB
     Indication: Still^s disease
     Dosage: 75 MG, 1 DOSE 4 WEEKS
     Route: 065
  37. INFLIXIMAB [Suspect]
     Active Substance: INFLIXIMAB
     Indication: Graft versus host disease in gastrointestinal tract
  38. METHYLPREDNISOLONE [Suspect]
     Active Substance: METHYLPREDNISOLONE
     Indication: Still^s disease
     Route: 065
  39. ADALIMUMAB [Suspect]
     Active Substance: ADALIMUMAB
     Indication: Still^s disease
     Route: 065
  40. PREDNISOLONE [Suspect]
     Active Substance: PREDNISOLONE
     Indication: Still^s disease
     Dosage: LESS THAN 1 MG/KG, QD
     Route: 065
  41. PREDNISOLONE [Suspect]
     Active Substance: PREDNISOLONE
     Dosage: 2 MG/KG, QD
     Route: 065
  42. PREDNISOLONE [Suspect]
     Active Substance: PREDNISOLONE
     Dosage: 1 MG/KG, QD TAPERED
     Route: 065
  43. PREDNISOLONE [Suspect]
     Active Substance: PREDNISOLONE
     Route: 065
  44. INDOMETHACIN [Suspect]
     Active Substance: INDOMETHACIN
     Indication: Still^s disease
     Dosage: 25 MG, QD
     Route: 065
  45. THALIDOMIDE [Suspect]
     Active Substance: THALIDOMIDE
     Indication: Still^s disease
     Route: 065
  46. THALIDOMIDE [Suspect]
     Active Substance: THALIDOMIDE
     Dosage: 50 MG, QD
     Route: 065
  47. CANAKINUMAB [Suspect]
     Active Substance: CANAKINUMAB
     Indication: Still^s disease
     Route: 065
  48. ANAKINRA [Suspect]
     Active Substance: ANAKINRA
     Indication: Still^s disease
     Route: 065
  49. Oracillin [Concomitant]
     Indication: Product used for unknown indication
     Route: 065
  50. Oracillin [Concomitant]
     Indication: Product used for unknown indication
     Route: 065
  51. TOCILIZUMAB [Concomitant]
     Active Substance: TOCILIZUMAB
     Indication: Still^s disease
     Dosage: 50 MG, QD
     Route: 065
  52. ACYCLOVIR [Concomitant]
     Active Substance: ACYCLOVIR
     Indication: Product used for unknown indication
     Route: 065
  53. HYDROCORTISONE [Concomitant]
     Active Substance: HYDROCORTISONE
     Indication: Product used for unknown indication
     Route: 065
  54. HYDROCORTISONE [Concomitant]
     Active Substance: HYDROCORTISONE
     Indication: Product used for unknown indication
     Route: 065

REACTIONS (35)
  - Graft versus host disease in gastrointestinal tract [Recovered/Resolved]
  - Immune thrombocytopenia [Recovered/Resolved]
  - Autoimmune thyroiditis [Unknown]
  - Growth retardation [Unknown]
  - Actinomycotic sepsis [Unknown]
  - Acute graft versus host disease in skin [Recovering/Resolving]
  - Clostridium difficile colitis [Recovered/Resolved]
  - Hepatic cytolysis [Unknown]
  - Obliterative bronchiolitis [Recovered/Resolved]
  - Herpes zoster [Unknown]
  - Herpes zoster infection neurological [Unknown]
  - Cellulitis staphylococcal [Unknown]
  - Hypothyroidism [Unknown]
  - Cushingoid [Unknown]
  - Condition aggravated [Unknown]
  - Osteopenia [Unknown]
  - Hypertension [Unknown]
  - Arthralgia [Unknown]
  - Inflammation [Unknown]
  - Red blood cell sedimentation rate increased [Unknown]
  - C-reactive protein increased [Unknown]
  - Congenital aplasia [Unknown]
  - Focal nodular hyperplasia [Unknown]
  - Lung disorder [Recovered/Resolved]
  - Joint effusion [Recovered/Resolved]
  - Vitiligo [Unknown]
  - Thrombocytopenia [Unknown]
  - Secondary adrenocortical insufficiency [Unknown]
  - Toxicity to various agents [Unknown]
  - Varicella zoster virus infection [Unknown]
  - Infection reactivation [Unknown]
  - Drug ineffective for unapproved indication [Unknown]
  - Off label use [Unknown]
  - Infection [Unknown]
  - Product use in unapproved indication [Unknown]
